FAERS Safety Report 9249797 (Version 2)
Quarter: 2013Q3

REPORT INFORMATION
  Report Type: Spontaneous
  Country: DK (occurrence: CA)
  Receive Date: 20130423
  Receipt Date: 20130830
  Transmission Date: 20140515
  Serious: Yes (Disabling, Other)
  Sender: FDA-Public Use
  Company Number: CA-FRI-1000044570

PATIENT
  Age: 68 Year
  Sex: Female
  Weight: 75 kg

DRUGS (5)
  1. ESCITALOPRAM [Suspect]
     Indication: DEPRESSION
     Dosage: 30 MG
     Route: 048
  2. CELEBREX [Concomitant]
     Dosage: 200 MG
     Route: 048
  3. LOSEC [Concomitant]
     Dosage: 40 MG
     Route: 048
  4. TRYPTOPHAN [Concomitant]
     Dosage: 6 GRAM
     Route: 048
  5. TRYPTOPHAN [Concomitant]
     Dosage: 3 GRAM
     Route: 048

REACTIONS (2)
  - Urinary incontinence [Unknown]
  - Prescribed overdose [Unknown]
